FAERS Safety Report 16699683 (Version 1)
Quarter: 2019Q3

REPORT INFORMATION
  Report Type: Spontaneous
  Country: CZ (occurrence: CZ)
  Receive Date: 20190813
  Receipt Date: 20190813
  Transmission Date: 20191004
  Serious: Yes (Life-Threatening, Hospitalization, Other)
  Sender: FDA-Public Use
  Company Number: CZ-TEVA-2019-CZ-1090710

PATIENT
  Age: 52 Year
  Sex: Female

DRUGS (12)
  1. FOLINIC-ACID [Concomitant]
     Active Substance: LEUCOVORIN
     Indication: RECTAL ADENOCARCINOMA
     Dosage: PART OF FOLFOX
     Route: 065
     Dates: start: 201211
  2. 5-FLUOROURACIL [Concomitant]
     Active Substance: FLUOROURACIL
     Indication: RECTAL ADENOCARCINOMA
     Dosage: PART OF FOLFOX
     Route: 065
  3. OXALIPLATIN. [Suspect]
     Active Substance: OXALIPLATIN
     Indication: METASTASES TO LIVER
     Dosage: OXALIPLATIN WAS DISCONTINUED AFTER SIX CYCLES
     Route: 065
     Dates: start: 201404
  4. FOLINIC-ACID [Concomitant]
     Active Substance: LEUCOVORIN
     Indication: METASTASES TO LIVER
     Route: 065
     Dates: start: 201404
  5. FOLINIC-ACID [Concomitant]
     Active Substance: LEUCOVORIN
     Route: 065
     Dates: start: 201411
  6. OXALIPLATIN. [Suspect]
     Active Substance: OXALIPLATIN
     Indication: RECTAL ADENOCARCINOMA
     Dosage: PART OF FOLFOX CHEMOTHERAPY REGIMEN, DISCONTINUED AFTER EIGHT CYCLES
     Route: 065
     Dates: end: 201312
  7. FOLINIC-ACID [Concomitant]
     Active Substance: LEUCOVORIN
     Route: 065
     Dates: start: 201603
  8. XELODA [Concomitant]
     Active Substance: CAPECITABINE
     Indication: METASTASES TO LIVER
  9. OXALIPLATIN. [Suspect]
     Active Substance: OXALIPLATIN
     Dosage: OXALIPLATIN WAS STOPPED AFTER TWO CYCLES
     Dates: end: 201502
  10. OXALIPLATIN. [Suspect]
     Active Substance: OXALIPLATIN
     Dosage: RECEIVED OXALIPLATIN ACCORDING TO A DESENSITIZATION PROTOCOL WITH ENHANCED PREMEDICATION, PROLONG...
     Dates: start: 201705
  11. 5-FLUOROURACIL [Concomitant]
     Active Substance: FLUOROURACIL
     Indication: METASTASES TO LIVER
  12. XELODA [Concomitant]
     Active Substance: CAPECITABINE
     Indication: RECTAL ADENOCARCINOMA
     Dosage: PART OF XELOX CHEMOTHERAPY
     Route: 065
     Dates: start: 201705

REACTIONS (7)
  - Evans syndrome [Recovered/Resolved]
  - Neurotoxicity [Unknown]
  - Flushing [Unknown]
  - Acute kidney injury [Recovered/Resolved]
  - Hypersensitivity [Unknown]
  - Pruritus [Unknown]
  - Type II hypersensitivity [Recovered/Resolved]

NARRATIVE: CASE EVENT DATE: 2014
